FAERS Safety Report 5336192-X (Version None)
Quarter: 2007Q2

REPORT INFORMATION
  Report Type: 
  Country: None (occurrence: None)
  Receive Date: 20070302
  Receipt Date: 20061212
  Transmission Date: 20071010
  Serious: No
  Sender: FDA-Public Use
  Company Number: PHEH2006US15174

PATIENT
  Age: 91 Year
  Sex: Male

DRUGS (1)
  1. ENABLEX [Suspect]
     Dosage: 15 MG, QD, ORAL
     Route: 048
     Dates: start: 20061012

REACTIONS (2)
  - DIZZINESS [None]
  - DRY MOUTH [None]
